FAERS Safety Report 10215069 (Version 2)
Quarter: 2014Q2

REPORT INFORMATION
  Report Type: Spontaneous
  Country: US (occurrence: US)
  Receive Date: 20140603
  Receipt Date: 20140627
  Transmission Date: 20141212
  Serious: No
  Sender: FDA-Public Use
  Company Number: US-B.I. PHARMACEUTICALS,INC./RIDGEFIELD-2014-BI-22880BP

PATIENT
  Age: 66 Year
  Sex: Female
  Weight: 150 kg

DRUGS (6)
  1. SPIRIVA [Suspect]
     Indication: CHRONIC OBSTRUCTIVE PULMONARY DISEASE
     Dosage: 18 MCG
     Route: 055
     Dates: start: 2009
  2. LANTUS [Concomitant]
     Route: 065
  3. CRESTOR [Concomitant]
     Route: 065
  4. ACTOS [Concomitant]
     Route: 065
  5. PROZAC [Concomitant]
     Route: 065
  6. RAMIPRIL [Concomitant]
     Route: 065

REACTIONS (3)
  - Dyspnoea [Not Recovered/Not Resolved]
  - Product quality issue [Not Recovered/Not Resolved]
  - Product quality issue [Not Recovered/Not Resolved]
